FAERS Safety Report 7103731-8 (Version None)
Quarter: 2010Q4

REPORT INFORMATION
  Report Type: 
  Country: None (occurrence: None)
  Receive Date: 20101115
  Receipt Date: 20101105
  Transmission Date: 20110411
  Serious: Yes (Life-Threatening, Hospitalization)
  Sender: FDA-Public Use
  Company Number: DE-WATSON-2010-14587

PATIENT
  Age: 67 Year
  Sex: Male
  Weight: 85 kg

DRUGS (6)
  1. METFORMIN HCL [Suspect]
     Indication: TYPE 2 DIABETES MELLITUS
     Dosage: 850 MG, BID
     Route: 048
     Dates: end: 20100928
  2. FUROSEMID                          /00032601/ [Suspect]
     Indication: LEFT VENTRICULAR FAILURE
     Dosage: 40 MG, BID
     Route: 048
     Dates: start: 20100920
  3. FUROSEMID                          /00032601/ [Suspect]
     Dosage: 40 MG, DAILY
     Route: 048
     Dates: end: 20100920
  4. DICLOFENAC SODIUM [Suspect]
     Indication: PAIN
     Dosage: 3 X 75 MG, UNKNOWN
     Route: 048
     Dates: start: 20100920, end: 20100928
  5. LISINOPRIL [Concomitant]
     Indication: HYPERTENSIVE HEART DISEASE
     Dosage: 1 X 10 MG, UNK
     Route: 048
  6. AMLODIPINE BESYLATE [Concomitant]
     Indication: HYPERTENSIVE HEART DISEASE
     Dosage: 1 X 5 MG, UNK
     Route: 048

REACTIONS (3)
  - CONVULSION [None]
  - LACTIC ACIDOSIS [None]
  - RENAL FAILURE ACUTE [None]
